FAERS Safety Report 17046693 (Version 1)
Quarter: 2019Q4

REPORT INFORMATION
  Report Type: Spontaneous
  Country: US (occurrence: US)
  Receive Date: 20191119
  Receipt Date: 20191119
  Transmission Date: 20200122
  Serious: Yes (Life-Threatening, Hospitalization)
  Sender: FDA-Public Use
  Company Number: US-TEVA-2019-US-1138575

PATIENT
  Age: 39 Year
  Sex: Male

DRUGS (5)
  1. VASOPRESSIN. [Suspect]
     Active Substance: VASOPRESSIN
     Indication: SHOCK
     Dosage: 0.04 UNITS/MINUTE
     Route: 065
  2. HALDOL [Concomitant]
     Active Substance: HALOPERIDOL
     Indication: SCHIZOAFFECTIVE DISORDER
     Route: 065
  3. NOREPINEPHRINE. [Suspect]
     Active Substance: NOREPINEPHRINE
     Indication: SHOCK
     Dosage: 1 MICROG/KG/MINUTE
     Route: 065
  4. CLOZAPINE. [Suspect]
     Active Substance: CLOZAPINE
     Indication: SCHIZOAFFECTIVE DISORDER
     Dosage: ADMINISTERED ^WHOLE BOTTLE^
     Route: 065
  5. EPINEPHRINE. [Suspect]
     Active Substance: EPINEPHRINE
     Indication: SHOCK
     Dosage: 1 MICROG/KG/MINUTE
     Route: 065

REACTIONS (11)
  - Oliguria [Recovering/Resolving]
  - Renal tubular necrosis [Recovering/Resolving]
  - Intentional overdose [Unknown]
  - Pupillary reflex impaired [Recovering/Resolving]
  - Renal tubular acidosis [Recovering/Resolving]
  - Tachycardia [Recovering/Resolving]
  - Acute kidney injury [Recovering/Resolving]
  - Suicide attempt [Unknown]
  - Mental status changes [Recovering/Resolving]
  - Drug ineffective [Unknown]
  - Shock [Recovering/Resolving]
